FAERS Safety Report 13304235 (Version 1)
Quarter: 2017Q1

REPORT INFORMATION
  Report Type: Spontaneous
  Country: NO (occurrence: NO)
  Receive Date: 20170308
  Receipt Date: 20170308
  Transmission Date: 20170428
  Serious: Yes (Other)
  Sender: FDA-Public Use
  Company Number: NO-UCBSA-2017008179

PATIENT
  Age: 20 Year
  Sex: Female

DRUGS (1)
  1. KEPPRA [Suspect]
     Active Substance: LEVETIRACETAM
     Indication: HYPEREXPLEXIA
     Dosage: 250 MG, 2X/DAY (BID)
     Route: 048
     Dates: start: 20170118, end: 20170124

REACTIONS (2)
  - Suicidal ideation [Recovering/Resolving]
  - Adjustment disorder with depressed mood [Recovering/Resolving]

NARRATIVE: CASE EVENT DATE: 201701
